FAERS Safety Report 5889990-8 (Version None)
Quarter: 2008Q3

REPORT INFORMATION
  Report Type: 
  Country: None (occurrence: None)
  Receive Date: 20080919
  Receipt Date: 20080909
  Transmission Date: 20090109
  Serious: Yes (Hospitalization, Other)
  Sender: FDA-Public Use
  Company Number: GB-PFIZER INC-2008070272

PATIENT
  Sex: Female
  Weight: 97 kg

DRUGS (2)
  1. GABAPENTIN [Suspect]
     Indication: NERVE INJURY
     Route: 048
     Dates: start: 20080519, end: 20080613
  2. LEVOCETIRIZINE [Concomitant]
     Indication: SEASONAL ALLERGY
     Route: 048
     Dates: start: 19980101

REACTIONS (6)
  - AMNESIA [None]
  - DIPLOPIA [None]
  - DYSARTHRIA [None]
  - FALL [None]
  - HEAD INJURY [None]
  - NERVOUS SYSTEM DISORDER [None]
